FAERS Safety Report 15654078 (Version 1)
Quarter: 2018Q4

REPORT INFORMATION
  Report Type: Spontaneous
  Country: US (occurrence: US)
  Receive Date: 20181125
  Receipt Date: 20181125
  Transmission Date: 20190205
  Serious: Yes (Other)
  Sender: FDA-Public Use
  Company Number: None

PATIENT
  Age: 47 Year
  Sex: Female
  Weight: 46 kg

DRUGS (7)
  1. LORATADINE 10MG [Concomitant]
     Active Substance: LORATADINE
  2. BACTRIM DS [Suspect]
     Active Substance: SULFAMETHOXAZOLE\TRIMETHOPRIM
     Indication: ABSCESS
     Dosage: ?          OTHER ROUTE:GASTROSTOMY TUBE?
     Dates: start: 20180807, end: 20180817
  3. LEVETIRACETAM 1500MG [Concomitant]
     Active Substance: LEVETIRACETAM
  4. MONTELUKAST [Concomitant]
     Active Substance: MONTELUKAST SODIUM
  5. PHENOBARBITAL 129.6MG [Concomitant]
  6. BACLOFEN 10MG [Concomitant]
     Active Substance: BACLOFEN
  7. LEVOTHYROXINE 100 MCG [Concomitant]
     Active Substance: LEVOTHYROXINE

REACTIONS (2)
  - Dermatitis contact [None]
  - Rash erythematous [None]

NARRATIVE: CASE EVENT DATE: 20180809
